FAERS Safety Report 21793616 (Version 1)
Quarter: 2022Q4

REPORT INFORMATION
  Report Type: Spontaneous
  Country: CA (occurrence: CA)
  Receive Date: 20221229
  Receipt Date: 20221229
  Transmission Date: 20230112
  Serious: Yes (Hospitalization)
  Sender: FDA-Public Use
  Company Number: None

PATIENT
  Age: 72 Year
  Sex: Male
  Weight: 96 kg

DRUGS (13)
  1. DOCETAXEL [Suspect]
     Active Substance: DOCETAXEL
     Indication: Neoplasm prostate
     Dosage: 1 EVERY 21 DAYS
     Route: 042
  2. CALCIUM [Concomitant]
     Active Substance: CALCIUM
  3. ELIGARD [Concomitant]
     Active Substance: LEUPROLIDE ACETATE
     Dosage: POWDER FOR?SUSPENSION,?SUSTAINED RELEASE
  4. JANUVIA [Concomitant]
     Active Substance: SITAGLIPTIN PHOSPHATE
  5. EMPAGLIFLOZIN [Concomitant]
     Active Substance: EMPAGLIFLOZIN
  6. OXYBUTYNIN [Concomitant]
     Active Substance: OXYBUTYNIN
  7. PANTOPRAZOLE [Concomitant]
     Active Substance: PANTOPRAZOLE
  8. REPAGLINIDE [Concomitant]
     Active Substance: REPAGLINIDE
  9. SIMVASTATIN [Concomitant]
     Active Substance: SIMVASTATIN
  10. TAMSULOSIN [Concomitant]
     Active Substance: TAMSULOSIN
  11. TELMISARTAN [Concomitant]
     Active Substance: TELMISARTAN
  12. VITAMIN D [Concomitant]
     Active Substance: VITAMIN D NOS
  13. XGEVA [Concomitant]
     Active Substance: DENOSUMAB
     Route: 058

REACTIONS (2)
  - Acute kidney injury [Unknown]
  - Hepatic failure [Unknown]
